FAERS Safety Report 7755185-6 (Version None)
Quarter: 2011Q3

REPORT INFORMATION
  Report Type: 
  Country: None (occurrence: None)
  Receive Date: 20110916
  Receipt Date: 20110608
  Transmission Date: 20111222
  Serious: Yes (Hospitalization, Other)
  Sender: FDA-Public Use
  Company Number: US-GLAXOSMITHKLINE-A0930784A

PATIENT
  Age: 59 Year
  Sex: Male

DRUGS (3)
  1. PEGASYS [Concomitant]
  2. UNKNOWN [Concomitant]
  3. PROMACTA [Suspect]
     Indication: PRODUCT USED FOR UNKNOWN INDICATION
     Dosage: 50MG PER DAY
     Route: 048
     Dates: start: 20101001, end: 20110206

REACTIONS (1)
  - GASTROINTESTINAL HAEMORRHAGE [None]
